FAERS Safety Report 16737424 (Version 1)
Quarter: 2019Q3

REPORT INFORMATION
  Report Type: Report from Study
  Country: US (occurrence: US)
  Receive Date: 20190823
  Receipt Date: 20190823
  Transmission Date: 20191005
  Serious: No
  Sender: FDA-Public Use
  Company Number: PHEH2019US034232

PATIENT

DRUGS (1)
  1. COSENTYX [Suspect]
     Active Substance: SECUKINUMAB
     Indication: PSORIATIC ARTHROPATHY
     Dosage: 300 MG, UNK(300MG Q WEEKLY X 5 WEEKS THEN)
     Route: 058
     Dates: start: 201906

REACTIONS (2)
  - Constipation [Unknown]
  - Diarrhoea [Unknown]
